FAERS Safety Report 16184869 (Version 6)
Quarter: 2020Q2

REPORT INFORMATION
  Report Type: Spontaneous
  Country: US (occurrence: US)
  Receive Date: 20190411
  Receipt Date: 20200403
  Transmission Date: 20200713
  Serious: Yes (Other)
  Sender: FDA-Public Use
  Company Number: US-PFIZER INC-2019150958

PATIENT
  Age: 86 Year
  Sex: Female

DRUGS (1)
  1. XELJANZ XR [Suspect]
     Active Substance: TOFACITINIB CITRATE
     Dosage: 11 MG, UNK

REACTIONS (7)
  - Malaise [Unknown]
  - Infection [Unknown]
  - Depressed mood [Unknown]
  - Sciatica [Unknown]
  - Clostridium difficile infection [Unknown]
  - Spinal pain [Unknown]
  - Alopecia [Unknown]
